FAERS Safety Report 7825400-9 (Version None)
Quarter: 2011Q4

REPORT INFORMATION
  Report Type: 
  Country: None (occurrence: None)
  Receive Date: 20111019
  Receipt Date: 20111012
  Transmission Date: 20120403
  Serious: Yes (Hospitalization, Other)
  Sender: FDA-Public Use
  Company Number: DE-JNJFOC-20100606402

PATIENT
  Age: 52 Year
  Sex: Male
  Weight: 108 kg

DRUGS (1)
  1. SIMPONI [Suspect]
     Indication: RHEUMATOID ARTHRITIS
     Route: 058
     Dates: start: 20100607

REACTIONS (5)
  - GROIN ABSCESS [None]
  - SYNOVIAL RUPTURE [None]
  - LYMPHADENOPATHY [None]
  - PAIN IN EXTREMITY [None]
  - OEDEMA PERIPHERAL [None]
